FAERS Safety Report 5478073-7 (Version None)
Quarter: 2007Q4

REPORT INFORMATION
  Report Type: 
  Country: None (occurrence: None)
  Receive Date: 20071005
  Receipt Date: 20071001
  Transmission Date: 20080405
  Serious: Yes (Other)
  Sender: FDA-Public Use
  Company Number: BR-JNJFOC-20071000872

PATIENT
  Age: 12 Month
  Sex: Female

DRUGS (2)
  1. TYLENOL [Suspect]
     Indication: PYREXIA
     Route: 048
  2. TYLENOL [Suspect]
     Indication: PAIN
     Route: 048

REACTIONS (2)
  - CONVULSION [None]
  - DRUG INEFFECTIVE [None]
